FAERS Safety Report 4580077-3 (Version None)
Quarter: 2005Q1

REPORT INFORMATION
  Report Type: 
  Country: None (occurrence: None)
  Receive Date: 20050214
  Receipt Date: 20050201
  Transmission Date: 20050727
  Serious: Yes (Other)
  Sender: FDA-Public Use
  Company Number: US-JNJFOC-20050101088

PATIENT
  Sex: Female
  Weight: 59.88 kg

DRUGS (4)
  1. ULTRAM [Suspect]
     Indication: PAIN
     Dosage: 1 TABLET, STRENGTH UNKNOWN
     Route: 049
  2. NEURONTIN [Concomitant]
     Indication: COMPLEX REGIONAL PAIN SYNDROME
  3. LORTAB [Concomitant]
  4. LORTAB [Concomitant]

REACTIONS (3)
  - BLOOD PRESSURE INCREASED [None]
  - HEART RATE INCREASED [None]
  - MYOCARDIAL INFARCTION [None]
